FAERS Safety Report 21720987 (Version 1)
Quarter: 2022Q4

REPORT INFORMATION
  Report Type: Other
  Country: CN (occurrence: None)
  Receive Date: 20221213
  Receipt Date: 20221213
  Transmission Date: 20230113
  Serious: Yes (Other)
  Sender: FDA-Public Use
  Company Number: CN-ROCHE-2201426

PATIENT

DRUGS (8)
  1. RITUXIMAB [Suspect]
     Active Substance: RITUXIMAB
     Indication: Haematological malignancy
     Route: 065
  2. CYCLOPHOSPHAMIDE [Suspect]
     Active Substance: CYCLOPHOSPHAMIDE
     Indication: Haematological malignancy
     Route: 065
  3. VINCRISTINE [Suspect]
     Active Substance: VINCRISTINE
     Indication: Haematological malignancy
     Route: 065
  4. DOXORUBICIN [Suspect]
     Active Substance: DOXORUBICIN
     Indication: Haematological malignancy
     Route: 065
  5. PREDNISONE [Suspect]
     Active Substance: PREDNISONE
     Indication: Haematological malignancy
     Route: 065
  6. ETOPOSIDE [Suspect]
     Active Substance: ETOPOSIDE
     Indication: Haematological malignancy
     Route: 065
  7. BLEOMYCIN [Suspect]
     Active Substance: BLEOMYCIN SULFATE
     Indication: Haematological malignancy
     Route: 065
  8. TENIPOSIDE [Suspect]
     Active Substance: TENIPOSIDE
     Indication: Haematological malignancy
     Route: 065

REACTIONS (12)
  - Cytomegalovirus infection [Unknown]
  - Enterovirus infection [Unknown]
  - Acinetobacter infection [Unknown]
  - Klebsiella infection [Unknown]
  - Pulmonary toxicity [Unknown]
  - Enterococcal infection [Unknown]
  - Aspergillus infection [Unknown]
  - Coxsackie viral infection [Unknown]
  - Candida infection [Unknown]
  - Candida infection [Unknown]
  - Epstein-Barr virus infection [Unknown]
  - Respiratory syncytial virus infection [Unknown]
